FAERS Safety Report 8825405 (Version 2)
Quarter: 2012Q4

REPORT INFORMATION
  Report Type: 
  Country: US (occurrence: US)
  Receive Date: 20121004
  Receipt Date: 20121124
  Transmission Date: 20130627
  Serious: No
  Sender: FDA-Public Use
  Company Number: US-009507513-1210USA000057

PATIENT
  Age: 24 Year
  Sex: Female
  Weight: 95.24 kg

DRUGS (1)
  1. NEXPLANON [Suspect]
     Indication: CONTRACEPTION
     Dosage: 1 time insertion on the left arm
     Dates: start: 20120312

REACTIONS (6)
  - Nipple pain [Not Recovered/Not Resolved]
  - Vomiting in pregnancy [Not Recovered/Not Resolved]
  - Unintended pregnancy [Unknown]
  - Implant site pain [Unknown]
  - Device breakage [Unknown]
  - Nausea [Not Recovered/Not Resolved]
